FAERS Safety Report 8992861 (Version 1)
Quarter: 2013Q1

REPORT INFORMATION
  Report Type: Spontaneous
  Country: CA (occurrence: CA)
  Receive Date: 20130102
  Receipt Date: 20130102
  Transmission Date: 20140127
  Serious: Yes (Other)
  Sender: FDA-Public Use
  Company Number: CA-SHIRE-ALL1-2012-06501

PATIENT
  Age: 7 Year
  Sex: Male
  Weight: 23.58 kg

DRUGS (1)
  1. ADDERALL XR [Suspect]
     Indication: ATTENTION DEFICIT/HYPERACTIVITY DISORDER
     Dosage: 10 MG, 1X/DAY:QD
     Route: 048
     Dates: start: 2012, end: 20121218

REACTIONS (5)
  - Hallucination [Unknown]
  - Social avoidant behaviour [Unknown]
  - Decreased appetite [Unknown]
  - Affect lability [Unknown]
  - Insomnia [Unknown]
